FAERS Safety Report 20437395 (Version 1)
Quarter: 2022Q1

REPORT INFORMATION
  Report Type: Spontaneous
  Country: US (occurrence: None)
  Receive Date: 20220204
  Receipt Date: 20220204
  Transmission Date: 20220424
  Serious: No
  Sender: FDA-Public Use
  Company Number: None

PATIENT
  Sex: Female

DRUGS (1)
  1. EVEROLIMUS [Suspect]
     Active Substance: EVEROLIMUS
     Indication: Breast cancer female
     Dosage: 10MG DAILY ORAL?
     Route: 048
     Dates: start: 20211102

REACTIONS (4)
  - Product substitution issue [None]
  - Peripheral swelling [None]
  - Peripheral swelling [None]
  - Therapy interrupted [None]
